FAERS Safety Report 7600800-0 (Version None)
Quarter: 2011Q3

REPORT INFORMATION
  Report Type: 
  Country: None (occurrence: None)
  Receive Date: 20110707
  Receipt Date: 20110707
  Transmission Date: 20111222
  Serious: Yes (Death)
  Sender: FDA-Public Use
  Company Number: None

PATIENT
  Sex: Male
  Weight: 102.0593 kg

DRUGS (2)
  1. ACTIVASE [Suspect]
     Indication: CEREBROVASCULAR ACCIDENT
     Dosage: 9 MG X1 IV BOLUS; 81 MG X1 IV DRIP
     Route: 040
     Dates: start: 20110514, end: 20110514
  2. ACTIVASE [Suspect]
     Indication: CEREBROVASCULAR ACCIDENT
     Dosage: 9 MG X1 IV BOLUS; 81 MG X1 IV DRIP
     Route: 040
     Dates: start: 20110514, end: 20110514

REACTIONS (1)
  - HAEMORRHAGE INTRACRANIAL [None]
